FAERS Safety Report 22789296 (Version 3)
Quarter: 2023Q4

REPORT INFORMATION
  Report Type: Spontaneous
  Country: US (occurrence: US)
  Receive Date: 20230804
  Receipt Date: 20231023
  Transmission Date: 20240109
  Serious: Yes (Other)
  Sender: FDA-Public Use
  Company Number: US-JNJFOC-20230760121

PATIENT
  Sex: Male

DRUGS (1)
  1. STELARA [Suspect]
     Active Substance: USTEKINUMAB
     Indication: Product used for unknown indication
     Dosage: 130 MG 4 VIAL
     Route: 040

REACTIONS (4)
  - Loss of consciousness [Unknown]
  - Poor venous access [Unknown]
  - Product storage error [Unknown]
  - Product preparation issue [Unknown]
